FAERS Safety Report 26000636 (Version 1)
Quarter: 2025Q4

REPORT INFORMATION
  Report Type: Spontaneous
  Country: US (occurrence: None)
  Receive Date: 20251104
  Receipt Date: 20251104
  Transmission Date: 20260119
  Serious: Yes (Hospitalization)
  Sender: FDA-CTU
  Company Number: None

PATIENT
  Age: 32 Year
  Sex: Female
  Weight: 91 kg

DRUGS (2)
  1. RELEUKO [Suspect]
     Active Substance: FILGRASTIM-AYOW
     Indication: Haematopoietic stem cell mobilisation
     Dosage: FREQUENCY : DAILY;?
     Route: 058
     Dates: start: 20250404, end: 20250408
  2. PLERIXAFOR [Suspect]
     Active Substance: PLERIXAFOR
     Indication: Haematopoietic stem cell mobilisation
     Dosage: OTHER FREQUENCY : ONCE;?
     Route: 058
     Dates: start: 20250407, end: 20250407

REACTIONS (17)
  - Dizziness [None]
  - Syncope [None]
  - Fatigue [None]
  - Back pain [None]
  - Headache [None]
  - Arthralgia [None]
  - Arthralgia [None]
  - Chest discomfort [None]
  - Tricuspid valve incompetence [None]
  - Pulmonary valve incompetence [None]
  - Acquired diaphragmatic eventration [None]
  - Brain natriuretic peptide increased [None]
  - Dyspnoea exertional [None]
  - Cardiac failure [None]
  - Electric shock sensation [None]
  - Muscle spasms [None]
  - Therapy cessation [None]

NARRATIVE: CASE EVENT DATE: 20250409
